FAERS Safety Report 25832652 (Version 4)
Quarter: 2025Q4

REPORT INFORMATION
  Report Type: Spontaneous
  Country: US (occurrence: US)
  Receive Date: 20250922
  Receipt Date: 20251203
  Transmission Date: 20260118
  Serious: Yes (unspecified)
  Sender: RC OUTSOURCING, LLC
  Company Number: US-RC Outsourcing, LLC-2185032

PATIENT
  Age: 50 Year
  Sex: Male

DRUGS (1)
  1. BEVACIZUMAB [Suspect]
     Active Substance: BEVACIZUMAB

REACTIONS (1)
  - Endophthalmitis [Recovering/Resolving]
